FAERS Safety Report 9099539 (Version 1)
Quarter: 2013Q1

REPORT INFORMATION
  Report Type: Spontaneous
  Country: FR (occurrence: FR)
  Receive Date: 20130214
  Receipt Date: 20130214
  Transmission Date: 20140127
  Serious: Yes (Life-Threatening, Hospitalization)
  Sender: FDA-Public Use
  Company Number: FR-BRISTOL-MYERS SQUIBB COMPANY-17353079

PATIENT
  Age: 69 Year
  Sex: Female

DRUGS (5)
  1. COAPROVEL TABS [Suspect]
     Route: 048
     Dates: start: 2010, end: 20121118
  2. LAROXYL [Suspect]
     Dosage: 1DF:5-10 DROPS AT BEDTIME.
     Route: 048
     Dates: end: 20121118
  3. NOCTAMIDE [Concomitant]
     Dosage: 1 TAB AT BEDTIME
  4. PROKINYL [Concomitant]
  5. TARDYFERON [Concomitant]

REACTIONS (5)
  - Hyponatraemia [Recovered/Resolved]
  - Hypokalaemia [Recovered/Resolved]
  - Decreased appetite [Recovered/Resolved]
  - Nausea [Recovered/Resolved]
  - Vomiting [Recovered/Resolved]
